FAERS Safety Report 4916436-6 (Version None)
Quarter: 2006Q1

REPORT INFORMATION
  Report Type: 
  Country: None (occurrence: None)
  Receive Date: 20060214
  Receipt Date: 20060130
  Transmission Date: 20060701
  Serious: No
  Sender: FDA-Public Use
  Company Number: 200510549BYL

PATIENT
  Age: 44 Year
  Sex: Male

DRUGS (1)
  1. GLUCOBAY [Suspect]
     Indication: DIABETES MELLITUS
     Dosage: 150 MG, TOTAL DAILY, ORAL
     Route: 048
     Dates: start: 20050630

REACTIONS (1)
  - BLOOD POTASSIUM INCREASED [None]
